FAERS Safety Report 11874843 (Version 1)
Quarter: 2015Q4

REPORT INFORMATION
  Report Type: Spontaneous
  Country: US (occurrence: None)
  Receive Date: 20151228
  Receipt Date: 20151228
  Transmission Date: 20160305
  Serious: Yes (Other)
  Sender: FDA-Public Use
  Company Number: None

PATIENT
  Age: 33 Year
  Sex: Male

DRUGS (1)
  1. RIBASPHERE [Suspect]
     Active Substance: RIBAVIRIN
     Dosage: STRENGTH: 200

REACTIONS (5)
  - Muscle spasms [None]
  - Nausea [None]
  - Diarrhoea [None]
  - Urticaria [None]
  - Arthralgia [None]

NARRATIVE: CASE EVENT DATE: 20151224
